FAERS Safety Report 4774862-2 (Version None)
Quarter: 2005Q3

REPORT INFORMATION
  Report Type: 
  Country: None (occurrence: None)
  Receive Date: 20050919
  Receipt Date: 20050912
  Transmission Date: 20060218
  Serious: Yes (Hospitalization, Disabling, Other)
  Sender: FDA-Public Use
  Company Number: 2005119023

PATIENT
  Age: 63 Year
  Sex: Male

DRUGS (11)
  1. LIPITOR [Suspect]
     Indication: BLOOD CHOLESTEROL INCREASED
     Dosage: 40 MG (1 IN 1 D)
     Dates: start: 20031215, end: 20050822
  2. MAVIK [Concomitant]
  3. PLAVIX [Concomitant]
  4. ZETIA [Concomitant]
  5. LOPRESSOR [Concomitant]
  6. HYDRODIURIL [Concomitant]
  7. ISOSORBIDE MONONITRATE [Concomitant]
  8. MULTI-VITAMINS [Concomitant]
  9. ASCORBIC ACID [Concomitant]
  10. ALL OTHER THERAPEUTICI PRODUCTS [Concomitant]
  11. ASPIRIN [Concomitant]

REACTIONS (3)
  - INJURY [None]
  - ROTATOR CUFF SYNDROME [None]
  - TENDON RUPTURE [None]
